APPROVED DRUG PRODUCT: ALBUTEROL SULFATE
Active Ingredient: ALBUTEROL SULFATE
Strength: EQ 2MG BASE/5ML
Dosage Form/Route: SYRUP;ORAL
Application: A073419 | Product #001 | TE Code: AA
Applicant: TEVA PHARMACEUTICALS USA INC
Approved: Mar 30, 1992 | RLD: No | RS: Yes | Type: RX